FAERS Safety Report 9120305 (Version 3)
Quarter: 2013Q2

REPORT INFORMATION
  Report Type: Spontaneous
  Country: CH (occurrence: CH)
  Receive Date: 20130226
  Receipt Date: 20130607
  Transmission Date: 20140414
  Serious: Yes (Death, Other)
  Sender: FDA-Public Use
  Company Number: CH-ELI_LILLY_AND_COMPANY-CH201302006440

PATIENT
  Age: 57 Year
  Sex: Female
  Weight: 50 kg

DRUGS (7)
  1. EFIENT [Suspect]
     Indication: ACUTE MYOCARDIAL INFARCTION
     Dosage: 60 MG, QD
     Dates: start: 20130128
  2. ANGIOX [Concomitant]
     Indication: PERCUTANEOUS CORONARY INTERVENTION
     Dosage: 7.5 ML, SINGLE
     Route: 042
     Dates: start: 20130128
  3. ANGIOX [Concomitant]
     Dosage: 17.5 ML, EVERY HOUR
     Route: 042
     Dates: start: 20130128
  4. ASPIRIN CARDIO [Concomitant]
     Dosage: 100 MG, QD
     Route: 048
     Dates: start: 20130128, end: 20130128
  5. ASPIRIN CARDIO [Concomitant]
     Dosage: 250 MG, UNKNOWN
     Route: 042
  6. MORPHINE [Concomitant]
     Indication: ACUTE MYOCARDIAL INFARCTION
     Dosage: UNK
     Dates: start: 20130128
  7. HEPARIN [Concomitant]
     Dosage: 5000 U, SINGLE
     Dates: start: 20130128

REACTIONS (6)
  - Haemorrhage intracranial [Fatal]
  - Coronary artery dissection [Unknown]
  - Coagulation test abnormal [Unknown]
  - Ventricular fibrillation [Unknown]
  - Ventricular tachycardia [Unknown]
  - Brain oedema [Unknown]
